FAERS Safety Report 9395795 (Version 1)
Quarter: 2013Q3

REPORT INFORMATION
  Report Type: Report from Study
  Country: CA (occurrence: CA)
  Receive Date: 20130711
  Receipt Date: 20130711
  Transmission Date: 20140515
  Serious: Yes (Hospitalization)
  Sender: FDA-Public Use
  Company Number: CA-GLAXOSMITHKLINE-A0867495A

PATIENT
  Sex: Female

DRUGS (18)
  1. TYKERB [Suspect]
     Indication: BREAST CANCER METASTATIC
     Dosage: 1250MG PER DAY
     Route: 048
     Dates: start: 20100615, end: 20110306
  2. XELODA [Suspect]
     Indication: PRODUCT USED FOR UNKNOWN INDICATION
     Dosage: 1000MG TWICE PER DAY
     Route: 065
  3. LAXATIVE [Concomitant]
  4. DESMOPRESSIN [Concomitant]
     Indication: HYPOTHALAMO-PITUITARY DISORDER
     Route: 065
  5. METOCLOPRAMIDE [Concomitant]
     Dosage: 10MG UNKNOWN
     Route: 065
  6. HYDROMORPHONE [Concomitant]
     Dosage: 24MG TWICE PER DAY
     Route: 065
  7. ASA [Concomitant]
     Dosage: 81MG PER DAY
     Route: 065
  8. VITAMIN D [Concomitant]
     Dosage: 1000MG PER DAY
     Route: 065
  9. DEXAMETHASONE [Concomitant]
     Dosage: 1MG TWICE PER DAY
     Route: 065
  10. PANTOPRAZOLE [Concomitant]
     Dosage: 40MG PER DAY
     Route: 065
  11. METOPROLOL [Concomitant]
     Dosage: 25MG TWICE PER DAY
     Route: 065
  12. SLOW K [Concomitant]
     Route: 065
  13. SPIRONOLACTONE [Concomitant]
     Dosage: 25MG TWICE PER DAY
     Route: 065
  14. DILAUDID [Concomitant]
  15. MAXERAN [Concomitant]
  16. PANTOLOC [Concomitant]
  17. DECADRON [Concomitant]
  18. ANTIHYPERTENSIVES [Concomitant]

REACTIONS (10)
  - Oral pain [Unknown]
  - Skin ulcer [Unknown]
  - Diarrhoea [Unknown]
  - Diarrhoea [Unknown]
  - Stomatitis [Unknown]
  - Blood potassium decreased [Unknown]
  - Blood sodium decreased [Unknown]
  - Dehydration [Unknown]
  - Asthenia [Not Recovered/Not Resolved]
  - Renal failure [Unknown]
